FAERS Safety Report 8003381-5 (Version None)
Quarter: 2011Q4

REPORT INFORMATION
  Report Type: 
  Country: None (occurrence: None)
  Receive Date: 20111222
  Receipt Date: 20111213
  Transmission Date: 20120403
  Serious: Yes (Hospitalization, Other)
  Sender: FDA-Public Use
  Company Number: US-CELGENEUS-163-21880-11121769

PATIENT
  Sex: Female
  Weight: 64.922 kg

DRUGS (16)
  1. ASPIRIN [Concomitant]
     Route: 065
  2. BUMETANIDE [Concomitant]
     Route: 065
  3. LEVOTHYROXINE SODIUM [Concomitant]
     Route: 065
  4. PEPCID [Concomitant]
     Route: 065
  5. XALATAN [Concomitant]
     Route: 065
  6. ALBUTEROL [Concomitant]
     Route: 065
  7. OMEPRAZOLE [Concomitant]
     Route: 065
  8. OSCAL [Concomitant]
     Route: 065
  9. REVLIMID [Suspect]
     Dosage: 5 MILLIGRAM
     Route: 048
     Dates: start: 20100428
  10. MAGNESIUM [Concomitant]
     Route: 065
  11. DIALYVITE [Concomitant]
     Route: 065
  12. FOLIC ACID [Concomitant]
     Route: 065
  13. HYDRALAZINE HCL [Concomitant]
     Route: 065
  14. LIPITOR [Concomitant]
     Route: 065
  15. CENTRUM [Concomitant]
     Route: 065
  16. NEVANAC [Concomitant]
     Route: 065

REACTIONS (2)
  - HAEMORRHAGE [None]
  - MUSCULOSKELETAL DISORDER [None]
